FAERS Safety Report 13551386 (Version 2)
Quarter: 2017Q2

REPORT INFORMATION
  Report Type: Spontaneous
  Country: TR (occurrence: TR)
  Receive Date: 20170516
  Receipt Date: 20170602
  Transmission Date: 20170830
  Serious: Yes (Other)
  Sender: FDA-Public Use
  Company Number: TR-OTSUKA-2017_010652

PATIENT
  Sex: Male
  Weight: 68.5 kg

DRUGS (1)
  1. DECITABINE. [Suspect]
     Active Substance: DECITABINE
     Indication: MYELODYSPLASTIC SYNDROME
     Dosage: 20 MG/M2, 1 IN 4 WEEK DAY 1-5, 1
     Route: 042
     Dates: start: 20150406

REACTIONS (8)
  - Dysplasia [Unknown]
  - Thrombocytopenia [Recovered/Resolved]
  - Blood urea increased [Unknown]
  - Anaemia [Recovered/Resolved]
  - Blood lactate dehydrogenase increased [Unknown]
  - Seronegative arthritis [Unknown]
  - Neutropenia [Recovered/Resolved]
  - Blood glucose decreased [Unknown]

NARRATIVE: CASE EVENT DATE: 20150406
